FAERS Safety Report 25647743 (Version 4)
Quarter: 2025Q4

REPORT INFORMATION
  Report Type: Report from Study
  Country: US (occurrence: US)
  Receive Date: 20250806
  Receipt Date: 20251027
  Transmission Date: 20260117
  Serious: No
  Sender: ACADIA PHARMACEUTICALS
  Company Number: US-ACADIA PHARMACEUTICALS INC.-ACA-2025-PIM-008915

PATIENT
  Sex: Female
  Weight: 45.805 kg

DRUGS (5)
  1. NUPLAZID [Suspect]
     Active Substance: PIMAVANSERIN TARTRATE
     Indication: Parkinson^s disease psychosis
     Dosage: 34 MILLIGRAM, QD
     Route: 048
  2. SINEMET [Concomitant]
     Active Substance: CARBIDOPA\LEVODOPA
     Dosage: 25/100 MG, 3 DOSAGE FORM, TID
  3. SINEMET [Concomitant]
     Active Substance: CARBIDOPA\LEVODOPA
     Dosage: 50/200MG, 1 DOSAGE FORM, QD (AT BEDTIME)
  4. PRAMIPEXOLE [Concomitant]
     Active Substance: PRAMIPEXOLE
     Indication: Dyskinesia
  5. AMANTADINE [Concomitant]
     Active Substance: AMANTADINE
     Indication: Dyskinesia

REACTIONS (3)
  - Loss of personal independence in daily activities [Unknown]
  - Middle insomnia [Not Recovered/Not Resolved]
  - Somnolence [Not Recovered/Not Resolved]
